FAERS Safety Report 4950020-3 (Version None)
Quarter: 2006Q1

REPORT INFORMATION
  Report Type: 
  Country: None (occurrence: None)
  Receive Date: 20060315
  Receipt Date: 20060222
  Transmission Date: 20060701
  Serious: No
  Sender: FDA-Public Use
  Company Number: JP200602003367

PATIENT
  Age: 73 Year
  Sex: Male

DRUGS (1)
  1. GEMZAR [Suspect]
     Indication: PANCREATIC CARCINOMA
     Dosage: 800 MG/M2, INTRAVENOUS
     Route: 042
     Dates: start: 20051221

REACTIONS (2)
  - CONDITION AGGRAVATED [None]
  - RETINAL EXUDATES [None]
